FAERS Safety Report 9946564 (Version 1)
Quarter: 2014Q1

REPORT INFORMATION
  Report Type: Report from Study
  Country: US (occurrence: US)
  Receive Date: 20140303
  Receipt Date: 20140303
  Transmission Date: 20141002
  Serious: No
  Sender: FDA-Public Use
  Company Number: US-ABBVIE-13P-163-1062965-00

PATIENT
  Age: 55 Year
  Sex: Female

DRUGS (4)
  1. HUMIRA [Suspect]
     Indication: POLYARTHRITIS
     Route: 058
     Dates: start: 201107
  2. ALPHAGAN [Concomitant]
     Indication: GLAUCOMA
     Route: 047
  3. COSOPT [Concomitant]
     Indication: GLAUCOMA
     Route: 047
  4. LUMIGAN [Concomitant]
     Indication: GLAUCOMA
     Route: 047

REACTIONS (4)
  - Off label use [Unknown]
  - Vulval abscess [Not Recovered/Not Resolved]
  - Bloody discharge [Not Recovered/Not Resolved]
  - Unevaluable event [Not Recovered/Not Resolved]
